FAERS Safety Report 9520705 (Version 1)
Quarter: 2013Q3

REPORT INFORMATION
  Report Type: Spontaneous
  Country: US (occurrence: None)
  Receive Date: 20130911
  Receipt Date: 20130911
  Transmission Date: 20140515
  Serious: Yes (Other)
  Sender: FDA-Public Use
  Company Number: None

PATIENT
  Age: 90 Year
  Sex: Male
  Weight: 62.3 kg

DRUGS (17)
  1. HYDRALAZINE [Suspect]
     Indication: GOUT
     Route: 048
     Dates: start: 20110708, end: 20130526
  2. ALBUTEROL [Concomitant]
  3. AMLODIPINE [Concomitant]
  4. BENZONATATE [Concomitant]
  5. BRIMONIDINE [Concomitant]
  6. CHOLECALCIFEROL [Concomitant]
  7. DORZOLAMIDE/TIMOLOL [Concomitant]
  8. FERROUS SULFATE [Concomitant]
  9. FUROSEMIDE [Concomitant]
  10. HYDRALAZINE [Concomitant]
  11. MAGNESIUM OXIDE [Concomitant]
  12. METOPROLOL SUCCINATE [Concomitant]
  13. MIRTAZAPINE [Concomitant]
  14. OMEPRAZOLE [Concomitant]
  15. POTASSIUM C1 TAB [Concomitant]
  16. TIOTROPIUM [Concomitant]
  17. WARFARIN [Concomitant]

REACTIONS (3)
  - Haemoptysis [None]
  - Renal failure acute [None]
  - Lupus-like syndrome [None]
